FAERS Safety Report 10015467 (Version 1)
Quarter: 2014Q1

REPORT INFORMATION
  Report Type: Spontaneous
  Country: SE (occurrence: SE)
  Receive Date: 20140317
  Receipt Date: 20140317
  Transmission Date: 20141002
  Serious: Yes (Hospitalization)
  Sender: FDA-Public Use
  Company Number: SE-ASTRAZENECA-2014SE16388

PATIENT
  Age: 79 Year
  Sex: Female

DRUGS (2)
  1. ATACAND PLUS [Suspect]
     Route: 048
  2. LASIX [Suspect]
     Route: 065

REACTIONS (1)
  - Renal failure acute [Not Recovered/Not Resolved]
